FAERS Safety Report 25715683 (Version 1)
Quarter: 2025Q3

REPORT INFORMATION
  Report Type: Other
  Country: US (occurrence: US)
  Receive Date: 20250822
  Receipt Date: 20250822
  Transmission Date: 20251021
  Serious: Yes (Hospitalization, Other)
  Sender: ANI
  Company Number: US-ANIPHARMA-024180

PATIENT
  Age: 85 Year
  Sex: Male

DRUGS (2)
  1. ISOSORBIDE DINITRATE [Suspect]
     Active Substance: ISOSORBIDE DINITRATE
     Indication: Angina pectoris
  2. RANOLAZINE [Suspect]
     Active Substance: RANOLAZINE
     Indication: Angina pectoris

REACTIONS (5)
  - Acute coronary syndrome [Unknown]
  - Cardiogenic shock [Unknown]
  - Lactic acidosis [Unknown]
  - Acute myocardial infarction [Unknown]
  - Wheezing [Unknown]
